FAERS Safety Report 25980624 (Version 5)
Quarter: 2025Q4

REPORT INFORMATION
  Report Type: Report from Study
  Country: US (occurrence: US)
  Receive Date: 20251030
  Receipt Date: 20251128
  Transmission Date: 20260118
  Serious: No
  Sender: MALLINCKRODT
  Company Number: US-MALLINCKRODT-MNK202506692

PATIENT
  Age: 1 Month
  Sex: Male
  Weight: 4 kg

DRUGS (3)
  1. CORTICOTROPIN [Suspect]
     Active Substance: CORTICOTROPIN
     Indication: Infantile spasms
     Route: 030
     Dates: start: 20251023, end: 2025
  2. CORTICOTROPIN [Suspect]
     Active Substance: CORTICOTROPIN
     Dates: start: 2025, end: 2025
  3. CORTICOTROPIN [Suspect]
     Active Substance: CORTICOTROPIN
     Dates: start: 2025

REACTIONS (8)
  - Abdominal pain [Unknown]
  - Glucose urine present [Unknown]
  - Throat irritation [Unknown]
  - Irritability [Recovering/Resolving]
  - Fatigue [Unknown]
  - Hypertension [Not Recovered/Not Resolved]
  - Insomnia [Recovering/Resolving]
  - Nasopharyngitis [Unknown]

NARRATIVE: CASE EVENT DATE: 20250101
